FAERS Safety Report 25078566 (Version 1)
Quarter: 2025Q1

REPORT INFORMATION
  Report Type: Spontaneous
  Country: US (occurrence: None)
  Receive Date: 20250314
  Receipt Date: 20250314
  Transmission Date: 20250408
  Serious: Yes (Hospitalization)
  Sender: FDA-CTU
  Company Number: None

PATIENT
  Age: 79 Year
  Sex: Male
  Weight: 53.1 kg

DRUGS (3)
  1. FLUOROURACIL [Suspect]
     Active Substance: FLUOROURACIL
     Dates: end: 20250306
  2. LEUCOVORIN CALCIUM [Suspect]
     Active Substance: LEUCOVORIN CALCIUM
     Dates: end: 20250304
  3. ELOXATIN [Suspect]
     Active Substance: OXALIPLATIN
     Dates: end: 20250304

REACTIONS (11)
  - Nausea [None]
  - Decreased appetite [None]
  - Device dislocation [None]
  - Constipation [None]
  - Dysuria [None]
  - Abdominal pain [None]
  - Abdominal distension [None]
  - Vomiting [None]
  - Dysphagia [None]
  - Renal failure [None]
  - Drug ineffective [None]

NARRATIVE: CASE EVENT DATE: 20250312
